FAERS Safety Report 14229512 (Version 1)
Quarter: 2017Q4

REPORT INFORMATION
  Report Type: Spontaneous
  Country: US (occurrence: None)
  Receive Date: 20171127
  Receipt Date: 20171127
  Transmission Date: 20180321
  Serious: No
  Sender: FDA-Public Use
  Company Number: None

PATIENT
  Age: 75 Year
  Sex: Female

DRUGS (1)
  1. SUTENT [Suspect]
     Active Substance: SUNITINIB MALATE
     Indication: NEOPLASM MALIGNANT
     Dosage: FREQUENCY - QD X 4 WEEKS THEN 2 WEEKS OFF
     Route: 048
     Dates: start: 20170925, end: 20171103

REACTIONS (4)
  - Jaundice [None]
  - Quality of life decreased [None]
  - Somnolence [None]
  - Hypophagia [None]

NARRATIVE: CASE EVENT DATE: 20171103
